FAERS Safety Report 6896184-6 (Version None)
Quarter: 2010Q3

REPORT INFORMATION
  Report Type: 
  Country: None (occurrence: None)
  Receive Date: 20100802
  Receipt Date: 20100722
  Transmission Date: 20110219
  Serious: Yes (Death)
  Sender: FDA-Public Use
  Company Number: A0867516A

PATIENT
  Sex: Male

DRUGS (1)
  1. AVANDIA [Suspect]
     Dosage: 4MG UNKNOWN

REACTIONS (8)
  - ACUTE CORONARY SYNDROME [None]
  - ACUTE MYOCARDIAL INFARCTION [None]
  - ARRHYTHMIA [None]
  - CARDIAC ARREST [None]
  - CARDIAC DISORDER [None]
  - CORONARY ARTERY DISEASE [None]
  - HYPERTENSION [None]
  - PULMONARY EMBOLISM [None]
